FAERS Safety Report 4686998-5 (Version None)
Quarter: 2005Q2

REPORT INFORMATION
  Report Type: 
  Country: None (occurrence: None)
  Receive Date: 20050608
  Receipt Date: 20050519
  Transmission Date: 20051028
  Serious: Yes (Hospitalization)
  Sender: FDA-Public Use
  Company Number: US_020179873

PATIENT
  Age: 75 Year
  Sex: Female
  Weight: 72 kg

DRUGS (3)
  1. HUMALOG [Suspect]
     Indication: DIABETES MELLITUS
     Dates: start: 19970101
  2. HUMULIN R [Suspect]
     Indication: DIABETES MELLITUS
  3. PREDNISONE TAB [Concomitant]

REACTIONS (12)
  - CELLULITIS [None]
  - CHRONIC OBSTRUCTIVE AIRWAYS DISEASE EXACERBATED [None]
  - CONDITION AGGRAVATED [None]
  - DIABETES MELLITUS INADEQUATE CONTROL [None]
  - GENERAL PHYSICAL HEALTH DETERIORATION [None]
  - INFECTION [None]
  - LUNG DISORDER [None]
  - MALAISE [None]
  - PHARMACEUTICAL PRODUCT COMPLAINT [None]
  - TREMOR [None]
  - VISUAL DISTURBANCE [None]
  - WEIGHT INCREASED [None]
